FAERS Safety Report 9307100 (Version 1)
Quarter: 2013Q2

REPORT INFORMATION
  Report Type: Spontaneous
  Country: US (occurrence: US)
  Receive Date: 20130524
  Receipt Date: 20130524
  Transmission Date: 20140414
  Serious: No
  Sender: FDA-Public Use
  Company Number: US-009507513-1305USA010332

PATIENT
  Sex: Female
  Weight: 126.98 kg

DRUGS (1)
  1. IMPLANON [Suspect]
     Indication: CONTRACEPTION
     Dosage: 3 YEAR IMPLANT
     Route: 059
     Dates: start: 20120411, end: 20130508

REACTIONS (5)
  - Device deployment issue [Unknown]
  - Device breakage [Unknown]
  - Device difficult to use [Unknown]
  - Complication of device insertion [Unknown]
  - No adverse event [Unknown]
